FAERS Safety Report 24615084 (Version 1)
Quarter: 2024Q4

REPORT INFORMATION
  Report Type: Spontaneous
  Country: US (occurrence: US)
  Receive Date: 20241113
  Receipt Date: 20241113
  Transmission Date: 20250114
  Serious: No
  Sender: MERCK
  Company Number: US-009507513-2410USA006022

PATIENT
  Age: 15 Year
  Sex: Female

DRUGS (1)
  1. WINREVAIR [Suspect]
     Active Substance: SOTATERCEPT-CSRK
     Indication: Pulmonary arterial hypertension
     Dosage: 45 MG EVERY 21 DAYS

REACTIONS (2)
  - Product prescribing issue [Unknown]
  - No adverse event [Unknown]

NARRATIVE: CASE EVENT DATE: 20241014
